FAERS Safety Report 20034717 (Version 1)
Quarter: 2021Q4

REPORT INFORMATION
  Report Type: Spontaneous
  Country: AT (occurrence: AT)
  Receive Date: 20211104
  Receipt Date: 20211104
  Transmission Date: 20220304
  Serious: Yes (Death, Other)
  Sender: FDA-Public Use
  Company Number: AT-BoehringerIngelheim-2021-BI-135910

PATIENT
  Age: 55 Year
  Sex: Male

DRUGS (1)
  1. GILOTRIF [Suspect]
     Active Substance: AFATINIB
     Indication: Bronchioloalveolar carcinoma
     Dosage: 1 X DAILY 30MG
     Route: 065
     Dates: start: 20210602, end: 20210709

REACTIONS (3)
  - Bronchioloalveolar carcinoma [Fatal]
  - Therapy non-responder [Unknown]
  - Off label use [Recovered/Resolved]

NARRATIVE: CASE EVENT DATE: 20210101
